FAERS Safety Report 8003854 (Version 2)
Quarter: 2013Q3

REPORT INFORMATION
  Report Type: Spontaneous
  Country: US (occurrence: US)
  Receive Date: 20110623
  Receipt Date: 20130820
  Transmission Date: 20140515
  Serious: Yes (Other)
  Sender: FDA-Public Use
  Company Number: US-JNJFOC-20110604391

PATIENT
  Age: 73 Year
  Sex: Female
  Weight: 53.07 kg

DRUGS (11)
  1. REMICADE [Suspect]
     Indication: RHEUMATOID ARTHRITIS
     Route: 042
     Dates: start: 20110523
  2. REMICADE [Suspect]
     Indication: RHEUMATOID ARTHRITIS
     Dosage: 2ND DOSE
     Route: 042
     Dates: start: 20110607, end: 20110607
  3. NITROGLYCERINE [Concomitant]
     Route: 060
  4. BENADRYL [Concomitant]
     Indication: PREMEDICATION
     Route: 048
     Dates: start: 20110607
  5. SOLU MEDROL [Concomitant]
     Indication: PREMEDICATION
     Route: 042
     Dates: start: 20110607
  6. MTX [Concomitant]
     Dates: end: 20110425
  7. PREDNISONE [Concomitant]
     Dosage: EVERY AM
  8. NORCO [Concomitant]
     Dosage: 10/325 - 2 TABS EVERY 6 HRS PRN
  9. MS CONTIN [Concomitant]
  10. ELAVIL [Concomitant]
  11. ASPIRIN [Concomitant]

REACTIONS (6)
  - Oxygen saturation decreased [Recovered/Resolved]
  - Infusion related reaction [Recovered/Resolved]
  - Hypertension [Recovered/Resolved]
  - Tachycardia [Recovered/Resolved]
  - Nausea [Recovered/Resolved]
  - Chills [Recovered/Resolved]
